FAERS Safety Report 11580041 (Version 1)
Quarter: 2015Q3

REPORT INFORMATION
  Report Type: Spontaneous
  Country: US (occurrence: US)
  Receive Date: 20150930
  Receipt Date: 20150930
  Transmission Date: 20151125
  Serious: Yes (Hospitalization, Other)
  Sender: FDA-Public Use
  Company Number: US-ABBVIE-15P-163-1471512-00

PATIENT
  Age: 84 Year
  Sex: Male

DRUGS (1)
  1. ANDROGEL [Suspect]
     Active Substance: TESTOSTERONE
     Indication: BLOOD TESTOSTERONE DECREASED
     Route: 061
     Dates: start: 20120709, end: 201411

REACTIONS (12)
  - Impaired work ability [Unknown]
  - Anxiety [Unknown]
  - Cardiovascular disorder [Unknown]
  - Social problem [Unknown]
  - Pulmonary embolism [Unknown]
  - Anhedonia [Unknown]
  - Economic problem [Unknown]
  - Injury [Unknown]
  - Deep vein thrombosis [Unknown]
  - Fear [Unknown]
  - Loss of employment [Unknown]
  - Pain [Unknown]

NARRATIVE: CASE EVENT DATE: 20131104
